FAERS Safety Report 6708100-8 (Version None)
Quarter: 2010Q2

REPORT INFORMATION
  Report Type: 
  Country: None (occurrence: None)
  Receive Date: 20100503
  Receipt Date: 20090612
  Transmission Date: 20101027
  Serious: No
  Sender: FDA-Public Use
  Company Number: US-ASTRAZENECA-2009UW15055

PATIENT
  Age: 23385 Day
  Sex: Female
  Weight: 59 kg

DRUGS (3)
  1. NEXIUM [Suspect]
     Indication: GASTROOESOPHAGEAL REFLUX DISEASE
     Dosage: 7
     Route: 048
  2. CRESTOR [Concomitant]
     Indication: HYPERCHOLESTEROLAEMIA
     Route: 048
  3. THYROID TAB [Concomitant]
     Indication: HYPOTHYROIDISM

REACTIONS (2)
  - ANXIETY [None]
  - GASTROOESOPHAGEAL REFLUX DISEASE [None]
